FAERS Safety Report 8853690 (Version 2)
Quarter: 2013Q2

REPORT INFORMATION
  Report Type: Spontaneous
  Country: US (occurrence: None)
  Receive Date: 20120426
  Receipt Date: 20120703
  Transmission Date: 20140414
  Serious: No
  Sender: FDA-Public Use
  Company Number: PHEH2012US004732

PATIENT
  Age: 27 Year
  Sex: Female
  Weight: 62.6 kg

DRUGS (1)
  1. GILENYA [Suspect]
     Route: 048
     Dates: start: 20120227, end: 20120227

REACTIONS (2)
  - Chest discomfort [None]
  - Insomnia [None]
